FAERS Safety Report 7259493-7 (Version None)
Quarter: 2011Q1

REPORT INFORMATION
  Report Type: 
  Country: None (occurrence: None)
  Receive Date: 20110130
  Receipt Date: 20101209
  Transmission Date: 20110831
  Serious: No
  Sender: FDA-Public Use
  Company Number: US-ABBOTT-09P-163-0578610-00

PATIENT
  Sex: Female
  Weight: 60.382 kg

DRUGS (5)
  1. HUMIRA [Suspect]
     Indication: RHEUMATOID ARTHRITIS
     Route: 058
     Dates: start: 20090606, end: 20100301
  2. NAPROXIN [Concomitant]
     Indication: PAIN
  3. MOBIC [Concomitant]
     Indication: PRODUCT USED FOR UNKNOWN INDICATION
  4. SYNTHROID [Concomitant]
     Indication: HYPOTHYROIDISM
  5. LYSINOPRYL/HYDROCHLOROTHYAZIDE [Concomitant]
     Indication: HYPERTENSION
     Dosage: 10-12.5

REACTIONS (10)
  - JOINT SWELLING [None]
  - NAUSEA [None]
  - INJECTION SITE PRURITUS [None]
  - CONTUSION [None]
  - PRURITUS [None]
  - DIZZINESS [None]
  - INJECTION SITE HAEMATOMA [None]
  - INJECTION SITE PAIN [None]
  - INJECTION SITE ERYTHEMA [None]
  - PRURITUS GENERALISED [None]
